FAERS Safety Report 9526396 (Version 1)
Quarter: 2013Q1

REPORT INFORMATION
  Report Type: Spontaneous
  Country: US (occurrence: None)
  Receive Date: 20130305
  Receipt Date: 20130305
  Transmission Date: 20140127
  Serious: Yes (Other)
  Sender: FDA-Public Use
  Company Number: 163-21880-12031333

PATIENT
  Age: 86 Year
  Sex: Female

DRUGS (10)
  1. REVLIMID (LENALIDOMIDE) (25 MILLIGRAM, CAPSULES) [Suspect]
     Indication: PLASMA CELL MYELOMA
     Route: 048
     Dates: start: 200811
  2. ALLOPURINOL (ALLOPURINOL) [Concomitant]
  3. LEVOTHYROXINE (LEVOTHYROXINE) [Concomitant]
  4. MAGNESIUM (MAGNESIUM) [Concomitant]
  5. POTASSIUM (POTASSIUM) [Concomitant]
  6. FUROSEMIDE (FUROSEMIDE) [Concomitant]
  7. ATENOL (ATENOLOL) [Concomitant]
  8. DABIGATRAN (DABIGATRAN) [Concomitant]
  9. LORAZEPAM (LORAZEPAM) [Concomitant]
  10. DEXAMETHASONE (DEXAMETHASONE) [Concomitant]

REACTIONS (1)
  - Rash [None]
